FAERS Safety Report 17433674 (Version 3)
Quarter: 2020Q1

REPORT INFORMATION
  Report Type: Report from Study
  Country: US (occurrence: US)
  Receive Date: 20200219
  Receipt Date: 20200313
  Transmission Date: 20200409
  Serious: Yes (Hospitalization)
  Sender: FDA-Public Use
  Company Number: NVSC2020US042597

PATIENT
  Age: 75 Year
  Sex: Female
  Weight: 79.7 kg

DRUGS (80)
  1. SLOW MAG [Concomitant]
     Active Substance: MAGNESIUM CHLORIDE
     Indication: HYPOMAGNESAEMIA
     Dosage: UNK
     Route: 065
     Dates: start: 20191227, end: 20200124
  2. NITROGLYCERIN. [Concomitant]
     Active Substance: NITROGLYCERIN
     Indication: CORONARY ARTERY DISEASE
     Dosage: UNK
     Route: 065
     Dates: start: 20170321
  3. HEPARIN [Concomitant]
     Active Substance: HEPARIN SODIUM
     Indication: SURGERY
     Dosage: UNK
     Route: 065
     Dates: start: 20200123, end: 20200130
  4. SPIRIVA [Concomitant]
     Active Substance: TIOTROPIUM BROMIDE MONOHYDRATE
     Indication: CHRONIC OBSTRUCTIVE PULMONARY DISEASE
     Dosage: UNK
     Route: 065
     Dates: start: 20150101
  5. BUMEX [Concomitant]
     Active Substance: BUMETANIDE
     Dosage: UNK
     Route: 065
     Dates: start: 20200202, end: 20200202
  6. SPIRONOLACTONE. [Concomitant]
     Active Substance: SPIRONOLACTONE
     Dosage: UNK
     Route: 065
     Dates: start: 20200126, end: 20200131
  7. SPIRONOLACTONE. [Concomitant]
     Active Substance: SPIRONOLACTONE
     Dosage: UNK
     Route: 065
     Dates: start: 20200204, end: 20200204
  8. GABAPENTIN. [Concomitant]
     Active Substance: GABAPENTIN
     Indication: NEUROPATHY PERIPHERAL
     Dosage: UNK
     Route: 065
     Dates: start: 20191224, end: 20200203
  9. TORSEMIDE. [Concomitant]
     Active Substance: TORSEMIDE
     Dosage: UNK
     Route: 065
     Dates: start: 20200204, end: 20200205
  10. FUROSEMIDE. [Concomitant]
     Active Substance: FUROSEMIDE
     Indication: CARDIAC FAILURE
     Dosage: UNK
     Route: 065
     Dates: start: 20200124, end: 20200124
  11. HYDROCORTISONE. [Concomitant]
     Active Substance: HYDROCORTISONE
     Dosage: UNK
     Route: 065
     Dates: start: 20200130, end: 20200130
  12. ACETAMINOPHEN. [Concomitant]
     Active Substance: ACETAMINOPHEN
     Indication: PAIN
     Dosage: UNK
     Route: 065
     Dates: start: 20200123
  13. KLOR-CON [Concomitant]
     Active Substance: POTASSIUM CHLORIDE
     Indication: MINERAL SUPPLEMENTATION
     Dosage: UNK
     Route: 065
     Dates: start: 20200126, end: 20200203
  14. CELEXA [Concomitant]
     Active Substance: CITALOPRAM HYDROBROMIDE
     Dosage: UNK
     Route: 065
     Dates: start: 20160226, end: 20200123
  15. ROCURONIUM [Concomitant]
     Active Substance: ROCURONIUM BROMIDE
     Indication: SURGERY
     Dosage: UNK
     Route: 065
     Dates: start: 20200130, end: 20200130
  16. POTASSIUM CHLORIDE. [Concomitant]
     Active Substance: POTASSIUM CHLORIDE
     Dosage: UNK
     Route: 065
     Dates: start: 20200203, end: 20200208
  17. BUMEX [Concomitant]
     Active Substance: BUMETANIDE
     Indication: CARDIAC FAILURE
     Dosage: UNK
     Route: 065
     Dates: start: 20200127, end: 20200127
  18. BUMEX [Concomitant]
     Active Substance: BUMETANIDE
     Dosage: UNK
     Route: 065
     Dates: start: 20200201, end: 20200203
  19. MAGNESIUM OXIDE. [Concomitant]
     Active Substance: MAGNESIUM OXIDE
     Dosage: UNK
     Route: 065
     Dates: start: 20200205
  20. REVEFENACIN. [Concomitant]
     Active Substance: REVEFENACIN
     Indication: CHRONIC OBSTRUCTIVE PULMONARY DISEASE
     Route: 065
     Dates: start: 20200126
  21. CEPACOL [Concomitant]
     Active Substance: BENZOCAINE
     Indication: OROPHARYNGEAL PAIN
     Dosage: UNK
     Route: 065
     Dates: start: 20200126, end: 20200126
  22. CEFEPIME [Concomitant]
     Active Substance: CEFEPIME HYDROCHLORIDE
     Indication: URINARY TRACT INFECTION
     Dosage: UNK
     Route: 065
     Dates: start: 20200126, end: 20200126
  23. MICRO-GUARD [Concomitant]
     Active Substance: MICONAZOLE NITRATE
     Indication: INTERTRIGO
     Route: 065
     Dates: start: 20160101, end: 20200124
  24. FENTANYL. [Concomitant]
     Active Substance: FENTANYL
     Indication: SURGERY
     Dosage: UNK
     Route: 065
     Dates: start: 20200130, end: 20200130
  25. PHENYLEPHRINE [Concomitant]
     Active Substance: PHENYLEPHRINE HYDROCHLORIDE
     Indication: SURGERY
     Dosage: UNK
     Route: 065
     Dates: start: 20200130, end: 20200130
  26. FERROUS SULFATE. [Concomitant]
     Active Substance: FERROUS SULFATE
     Indication: ANAEMIA
     Dosage: UNK
     Route: 065
     Dates: start: 20150601, end: 20200124
  27. LATANOPROST. [Concomitant]
     Active Substance: LATANOPROST
     Indication: CATARACT
     Dosage: UNK
     Route: 065
     Dates: start: 20191209
  28. DORZOLAMIDE [Concomitant]
     Active Substance: DORZOLAMIDE
     Indication: GLAUCOMA
     Dosage: UNK
     Route: 065
     Dates: start: 20191209
  29. SPIRONOLACTONE. [Concomitant]
     Active Substance: SPIRONOLACTONE
     Indication: CARDIAC FAILURE
     Dosage: UNK
     Route: 065
     Dates: start: 20191220, end: 20200124
  30. BROVANA [Concomitant]
     Active Substance: ARFORMOTEROL TARTRATE
     Indication: CHRONIC OBSTRUCTIVE PULMONARY DISEASE
     Dosage: UNK
     Route: 065
     Dates: start: 20200126, end: 20200127
  31. MAGNESIUM OXIDE. [Concomitant]
     Active Substance: MAGNESIUM OXIDE
     Indication: MINERAL SUPPLEMENTATION
     Dosage: UNK
     Route: 065
     Dates: start: 20200126, end: 20200127
  32. ATORVASTATIN [Concomitant]
     Active Substance: ATORVASTATIN
     Indication: DYSLIPIDAEMIA
     Dosage: UNK
     Route: 065
     Dates: start: 20000101
  33. APIXABAN [Concomitant]
     Active Substance: APIXABAN
     Indication: PERIPHERAL VASCULAR DISORDER
     Dosage: UNK
     Route: 065
     Dates: start: 20200201
  34. APIXABAN [Concomitant]
     Active Substance: APIXABAN
     Indication: ATRIAL FIBRILLATION
  35. CLOPIDOGREL [Concomitant]
     Active Substance: CLOPIDOGREL BISULFATE
     Indication: PERIPHERAL VASCULAR DISORDER
     Dosage: UNK
     Route: 065
     Dates: start: 20200130
  36. SUGAMMADEX [Concomitant]
     Active Substance: SUGAMMADEX
     Indication: SURGERY
     Dosage: UNK
     Route: 065
     Dates: start: 20200130, end: 20200130
  37. BLINDED NO TREATMENT RECEIVED [Suspect]
     Active Substance: INVESTIGATIONAL PRODUCT
     Indication: CARDIAC FAILURE ACUTE
     Dosage: UNK
     Route: 048
     Dates: start: 20191212
  38. OMEPRAZOLE. [Concomitant]
     Active Substance: OMEPRAZOLE
     Indication: GASTROOESOPHAGEAL REFLUX DISEASE
     Dosage: UNK
     Route: 065
     Dates: start: 20191227, end: 20200123
  39. POTASSIUM CHLORIDE. [Concomitant]
     Active Substance: POTASSIUM CHLORIDE
     Indication: HYPOKALAEMIA
     Dosage: UNK
     Route: 065
     Dates: start: 20191227, end: 20200123
  40. HEPARIN [Concomitant]
     Active Substance: HEPARIN SODIUM
     Indication: PERIPHERAL ISCHAEMIA
     Dosage: UNK
     Route: 065
     Dates: start: 20200130, end: 20200130
  41. SOTALOL. [Concomitant]
     Active Substance: SOTALOL
     Indication: ATRIAL FIBRILLATION
     Dosage: UNK
     Route: 065
     Dates: start: 20190717
  42. PERI-COLACE [Concomitant]
     Active Substance: CASANTHRANOL\DOCUSATE SODIUM
     Indication: CONSTIPATION
     Dosage: UNK
     Route: 065
     Dates: start: 20200131, end: 20200210
  43. ALBUMIN [Concomitant]
     Active Substance: ALBUMIN HUMAN
     Dosage: UNK
     Route: 065
     Dates: start: 20200203, end: 20200203
  44. IOPAMIDOL [Concomitant]
     Active Substance: IOPAMIDOL
     Indication: PREMEDICATION
     Dosage: UNK
     Route: 065
     Dates: start: 20200130, end: 20200130
  45. LIDOCAIN [Concomitant]
     Active Substance: LIDOCAINE
     Indication: SURGERY
     Dosage: UNK
     Route: 065
     Dates: start: 20200130, end: 20200130
  46. PROPOFOL. [Concomitant]
     Active Substance: PROPOFOL
     Indication: SURGERY
     Dosage: UNK
     Route: 065
     Dates: start: 20200130, end: 20200130
  47. PROTAMINE [Concomitant]
     Active Substance: PROTAMINE
     Indication: SURGERY
     Dosage: UNK
     Route: 065
     Dates: start: 20200130, end: 20200130
  48. HYPERTONIC SALINE SOLUTION [Concomitant]
     Active Substance: SODIUM CHLORIDE
     Indication: CHRONIC OBSTRUCTIVE PULMONARY DISEASE
     Dosage: UNK
     Route: 065
     Dates: start: 20191216
  49. TYLENOL EXTRA STRENGTH [Concomitant]
     Active Substance: ACETAMINOPHEN
     Indication: PAIN
     Dosage: UNK
     Route: 065
     Dates: start: 20171213, end: 20200124
  50. HEPARIN [Concomitant]
     Active Substance: HEPARIN SODIUM
     Indication: PERIPHERAL VASCULAR DISORDER
     Dosage: UNK
     Route: 065
     Dates: start: 20200123, end: 20200123
  51. HYDROCORTISONE. [Concomitant]
     Active Substance: HYDROCORTISONE
     Indication: PRODUCT USED FOR UNKNOWN INDICATION
     Dosage: UNK
     Route: 065
     Dates: start: 20200123, end: 20200123
  52. PANTOPRAZOLE [Concomitant]
     Active Substance: PANTOPRAZOLE
     Indication: GASTROOESOPHAGEAL REFLUX DISEASE
     Dosage: UNK
     Route: 065
     Dates: start: 20200123, end: 20200210
  53. PULMICORT TURBUHALER [Concomitant]
     Active Substance: BUDESONIDE
     Indication: CHRONIC OBSTRUCTIVE PULMONARY DISEASE
     Dosage: UNK
     Route: 065
     Dates: start: 20200126, end: 20200127
  54. CALCIUM CARBONATE. [Concomitant]
     Active Substance: CALCIUM CARBONATE
     Indication: GASTROOESOPHAGEAL REFLUX DISEASE
     Dosage: UNK
     Route: 065
     Dates: start: 20200128, end: 20200210
  55. MIRALAX [Concomitant]
     Active Substance: POLYETHYLENE GLYCOL 3350
     Indication: CONSTIPATION
     Dosage: UNK
     Route: 065
     Dates: start: 20200201, end: 20200205
  56. ALBUMIN [Concomitant]
     Active Substance: ALBUMIN HUMAN
     Indication: HYPOTENSION
     Dosage: UNK
     Route: 065
     Dates: start: 20200131, end: 20200201
  57. ONDANSETRON [Concomitant]
     Active Substance: ONDANSETRON
     Indication: SURGERY
     Dosage: UNK
     Route: 065
     Dates: start: 20200130, end: 20200130
  58. DIOVAN [Suspect]
     Active Substance: VALSARTAN
     Indication: CARDIAC FAILURE ACUTE
     Dosage: UNK
     Route: 048
     Dates: start: 20191212
  59. BLINDED LCZ696 [Suspect]
     Active Substance: SACUBITRIL\VALSARTAN
     Indication: CARDIAC FAILURE ACUTE
     Dosage: UNK
     Route: 048
     Dates: start: 20191212
  60. TUMS [Concomitant]
     Active Substance: CALCIUM CARBONATE
     Indication: GASTROOESOPHAGEAL REFLUX DISEASE
     Dosage: UNK
     Route: 065
     Dates: start: 20191209, end: 20200124
  61. GABAPENTIN. [Concomitant]
     Active Substance: GABAPENTIN
     Dosage: UNK
     Route: 065
     Dates: start: 20200205
  62. DIPHENHYDRAMINE. [Concomitant]
     Active Substance: DIPHENHYDRAMINE
     Indication: PRODUCT USED FOR UNKNOWN INDICATION
     Dosage: UNK
     Route: 065
     Dates: start: 20200124, end: 20200124
  63. DULERA [Concomitant]
     Active Substance: FORMOTEROL FUMARATE DIHYDRATE\MOMETASONE FUROATE
     Indication: CHRONIC OBSTRUCTIVE PULMONARY DISEASE
     Dosage: UNK
     Route: 065
     Dates: start: 20200124
  64. MAGNESIUM OXIDE. [Concomitant]
     Active Substance: MAGNESIUM OXIDE
     Indication: HYPOMAGNESAEMIA
     Dosage: UNK
     Route: 065
     Dates: start: 20200127, end: 20200203
  65. NORCO [Concomitant]
     Active Substance: ACETAMINOPHEN\HYDROCODONE BITARTRATE
     Indication: PAIN
     Dosage: UNK
     Route: 065
     Dates: start: 20150101
  66. CELEXA [Concomitant]
     Active Substance: CITALOPRAM HYDROBROMIDE
     Indication: DEPRESSION
     Dosage: UNK
     Route: 065
     Dates: start: 20200125
  67. ELIQUIS [Concomitant]
     Active Substance: APIXABAN
     Indication: PERIPHERAL VASCULAR DISORDER
     Dosage: UNK
     Route: 065
     Dates: start: 20150101, end: 20200124
  68. ALBUMIN [Concomitant]
     Active Substance: ALBUMIN HUMAN
     Dosage: UNK
     Route: 065
     Dates: start: 20200201, end: 20200201
  69. DIOVAN [Suspect]
     Active Substance: VALSARTAN
     Indication: CARDIAC FAILURE ACUTE
     Dosage: UNK
     Route: 048
     Dates: start: 20191212
  70. PROVENTIL [Concomitant]
     Active Substance: ALBUTEROL
     Indication: CHRONIC OBSTRUCTIVE PULMONARY DISEASE
     Dosage: UNK
     Route: 065
     Dates: start: 20191209
  71. FLONASE [Concomitant]
     Active Substance: FLUTICASONE PROPIONATE
     Indication: UPPER RESPIRATORY TRACT INFECTION
     Dosage: UNK
     Route: 065
     Dates: start: 20191211
  72. TORSEMIDE. [Concomitant]
     Active Substance: TORSEMIDE
     Indication: CARDIAC FAILURE
     Dosage: UNK
     Route: 065
     Dates: start: 20191227, end: 20200123
  73. TORSEMIDE. [Concomitant]
     Active Substance: TORSEMIDE
     Dosage: UNK
     Route: 065
     Dates: start: 20200206, end: 20200208
  74. METOLAZONE. [Concomitant]
     Active Substance: METOLAZONE
     Indication: CARDIAC FAILURE
     Dosage: UNK
     Route: 065
     Dates: start: 20191227, end: 20200123
  75. METOLAZONE. [Concomitant]
     Active Substance: METOLAZONE
     Dosage: UNK
     Route: 065
     Dates: start: 20200202, end: 20200203
  76. PREDNISONE. [Concomitant]
     Active Substance: PREDNISONE
     Indication: PRODUCT USED FOR UNKNOWN INDICATION
     Dosage: UNK
     Route: 065
     Dates: start: 20200123, end: 20200123
  77. PREDNISONE. [Concomitant]
     Active Substance: PREDNISONE
     Dosage: UNK
     Route: 065
     Dates: start: 20200124, end: 20200124
  78. BUMEX [Concomitant]
     Active Substance: BUMETANIDE
     Indication: CARDIAC FAILURE CONGESTIVE
     Dosage: UNK
     Route: 065
     Dates: start: 20200128, end: 20200129
  79. AMIODARONE [Concomitant]
     Active Substance: AMIODARONE
     Indication: ATRIAL FIBRILLATION
     Dosage: UNK
     Route: 065
     Dates: start: 20200203, end: 20200203
  80. SODIUM BICARBONATE. [Concomitant]
     Active Substance: SODIUM BICARBONATE
     Indication: SURGERY
     Dosage: UNK
     Route: 065
     Dates: start: 20200130, end: 20200130

REACTIONS (1)
  - Acute kidney injury [Recovering/Resolving]

NARRATIVE: CASE EVENT DATE: 20200201
